FAERS Safety Report 13203038 (Version 2)
Quarter: 2017Q4

REPORT INFORMATION
  Report Type: Report from Study
  Country: US (occurrence: US)
  Receive Date: 20170209
  Receipt Date: 20171108
  Transmission Date: 20180320
  Serious: Yes (Life-Threatening, Hospitalization)
  Sender: FDA-Public Use
  Company Number: US-BRISTOL-MYERS SQUIBB COMPANY-BMS-2017-009341

PATIENT
  Age: 50 Year
  Sex: Female

DRUGS (10)
  1. BLINDED PLACEBO [Suspect]
     Active Substance: INVESTIGATIONAL PRODUCT
     Indication: PRODUCT USED FOR UNKNOWN INDICATION
     Dosage: 1000 MG, QH
     Route: 042
     Dates: start: 20141028, end: 20141028
  2. BLINDED ABATACEPT [Suspect]
     Active Substance: ABATACEPT
     Indication: PRODUCT USED FOR UNKNOWN INDICATION
     Dosage: 1000 MG, QH
     Route: 042
     Dates: start: 20141019, end: 20141019
  3. BLINDED PLACEBO [Suspect]
     Active Substance: INVESTIGATIONAL PRODUCT
     Indication: PRODUCT USED FOR UNKNOWN INDICATION
     Dosage: 1000 MG, QH
     Route: 042
     Dates: start: 20141111, end: 20141111
  4. BLINDED ABATACEPT [Suspect]
     Active Substance: ABATACEPT
     Indication: IMMUNOSUPPRESSION
     Dosage: 1000 MG, QH
     Route: 042
     Dates: start: 20141013, end: 20141013
  5. PROGRAF [Concomitant]
     Active Substance: TACROLIMUS\TACROLIMUS ANHYDROUS
     Indication: PRODUCT USED FOR UNKNOWN INDICATION
     Dosage: 0.5 MG, Q12H
     Route: 048
  6. BLINDED ABATACEPT [Suspect]
     Active Substance: ABATACEPT
     Indication: PRODUCT USED FOR UNKNOWN INDICATION
     Dosage: 1000 MG, QH
     Route: 042
     Dates: start: 20141111, end: 20141111
  7. BLINDED PLACEBO [Suspect]
     Active Substance: INVESTIGATIONAL PRODUCT
     Indication: PRODUCT USED FOR UNKNOWN INDICATION
     Dosage: 1000 MG, QH
     Route: 042
     Dates: start: 20141019, end: 20141019
  8. BLINDED PLACEBO [Suspect]
     Active Substance: INVESTIGATIONAL PRODUCT
     Indication: IMMUNOSUPPRESSION
     Dosage: 1000 MG, QH
     Route: 042
     Dates: start: 20141013, end: 20141013
  9. BLINDED ABATACEPT [Suspect]
     Active Substance: ABATACEPT
     Indication: PRODUCT USED FOR UNKNOWN INDICATION
     Dosage: 1000 MG, QH
     Route: 042
     Dates: start: 20141028, end: 20141028
  10. PROGRAF [Concomitant]
     Active Substance: TACROLIMUS\TACROLIMUS ANHYDROUS
     Indication: PRODUCT USED FOR UNKNOWN INDICATION
     Dosage: 1 MG, UNK
     Route: 065
     Dates: start: 201611

REACTIONS (2)
  - Supraventricular tachycardia [Recovered/Resolved]
  - Blood creatinine increased [Unknown]

NARRATIVE: CASE EVENT DATE: 20141111
